FAERS Safety Report 7297705-4 (Version None)
Quarter: 2011Q1

REPORT INFORMATION
  Report Type: 
  Country: None (occurrence: None)
  Receive Date: 20110217
  Receipt Date: 20110209
  Transmission Date: 20110831
  Serious: Yes (Other)
  Sender: FDA-Public Use
  Company Number: US-ASTRAZENECA-2008UW03582

PATIENT
  Age: 33 Year
  Sex: Female
  Weight: 72.6 kg

DRUGS (26)
  1. NEURONTIN [Concomitant]
     Dates: start: 20040415
  2. GEMFIBROZIL [Concomitant]
     Dates: start: 20060221
  3. ALPRAZOLAM [Concomitant]
     Dates: start: 20040121
  4. SEROQUEL [Suspect]
     Indication: SLEEP DISORDER
     Dosage: 25 MG TO 100 MG
     Route: 048
     Dates: start: 20000101, end: 20070801
  5. RISPERDAL [Concomitant]
     Dosage: 1 MG ,3 MG DISPENSED
     Dates: start: 20040413
  6. ABILIFY [Concomitant]
     Dosage: 15 TO 30 MG
     Dates: start: 20041218, end: 20050701
  7. SEROQUEL [Suspect]
     Dosage: 25 MG, 100 MG AND 200 MG DISPENSED
     Route: 048
     Dates: start: 20040324
  8. ZYPREXA [Concomitant]
     Dosage: 0.5 TO 15 MG
     Dates: start: 20010101, end: 20040101
  9. CRESTOR [Concomitant]
     Indication: BLOOD CHOLESTEROL INCREASED
  10. NEURONTIN [Concomitant]
     Dates: start: 20040203
  11. PLAVIX [Concomitant]
     Dates: start: 20040421
  12. METOPROLOL [Concomitant]
     Indication: CORONARY ARTERY DISEASE
     Dates: start: 20040504
  13. RISPERDAL [Concomitant]
     Dates: start: 20000101
  14. ABILIFY [Concomitant]
     Dates: start: 20060221
  15. TRAZODONE [Concomitant]
     Dates: start: 20040506
  16. TOPAMAX [Concomitant]
     Dates: start: 20040519
  17. HALDOL [Concomitant]
     Dates: start: 20001116
  18. SEROQUEL [Suspect]
     Indication: BIPOLAR DISORDER
     Dosage: 25 MG TO 100 MG
     Route: 048
     Dates: start: 20000101, end: 20070801
  19. EFFEXOR [Concomitant]
     Dates: start: 20040121
  20. ZYPREXA [Concomitant]
     Dosage: 10 MG, 15 MG DISPENSED
     Dates: start: 20040324
  21. SEROQUEL [Suspect]
     Dosage: 25 MG, 100 MG AND 200 MG DISPENSED
     Route: 048
     Dates: start: 20040324
  22. CLONAZEPAM [Concomitant]
     Dates: start: 20040302
  23. MEVACOR [Concomitant]
     Indication: HYPERLIPIDAEMIA
     Dates: start: 20060221
  24. TOPAMAX [Concomitant]
     Dosage: 25 TO 50 MG
     Dates: start: 20040603
  25. GEODON [Concomitant]
     Dates: start: 20020101, end: 20020801
  26. CRESTOR [Concomitant]
     Indication: HYPERLIPIDAEMIA

REACTIONS (4)
  - HYPERLIPIDAEMIA [None]
  - NEUROPATHY PERIPHERAL [None]
  - BLOOD CHOLESTEROL INCREASED [None]
  - TYPE 2 DIABETES MELLITUS [None]
